FAERS Safety Report 24374917 (Version 1)
Quarter: 2024Q3

REPORT INFORMATION
  Report Type: Spontaneous
  Country: CA (occurrence: CA)
  Receive Date: 20240927
  Receipt Date: 20240927
  Transmission Date: 20241017
  Serious: Yes (Death, Life-Threatening)
  Sender: TEVA
  Company Number: CA-TEVA-VS-3245680

PATIENT
  Age: 52 Year
  Sex: Female

DRUGS (3)
  1. CISPLATIN [Suspect]
     Active Substance: CISPLATIN
     Indication: Cholangiocarcinoma
     Dosage: CISPLATIN INJECTION, DOSE FORM: SOLUTION INTRAVENOUS
     Route: 042
  2. IMFINZI [Suspect]
     Active Substance: DURVALUMAB
     Indication: Cholangiocarcinoma
     Dosage: DOSE FORM: SOLUTION INTRAVENOUS
     Route: 065
  3. GEMCITABINE [Suspect]
     Active Substance: GEMCITABINE
     Indication: Cholangiocarcinoma
     Route: 065

REACTIONS (1)
  - Febrile neutropenia [Fatal]
